FAERS Safety Report 10009687 (Version 1)
Quarter: 2014Q1

REPORT INFORMATION
  Report Type: Spontaneous
  Country: US (occurrence: US)
  Receive Date: 20140312
  Receipt Date: 20140312
  Transmission Date: 20141002
  Serious: No
  Sender: FDA-Public Use
  Company Number: US-INCYTE CORPORATION-2012IN002476

PATIENT
  Age: 80 Year
  Sex: Male

DRUGS (1)
  1. JAKAFI [Suspect]
     Dosage: UNK
     Dates: end: 20121116

REACTIONS (2)
  - Rash pruritic [Unknown]
  - Haemoglobin decreased [Unknown]
